FAERS Safety Report 10071747 (Version 2)
Quarter: 2014Q2

REPORT INFORMATION
  Report Type: Report from Study
  Country: CA (occurrence: CA)
  Receive Date: 20140411
  Receipt Date: 20140415
  Transmission Date: 20141212
  Serious: Yes (Other)
  Sender: FDA-Public Use
  Company Number: CA-JNJFOC-20140404806

PATIENT
  Sex: Male
  Weight: 95 kg

DRUGS (10)
  1. REMICADE [Suspect]
     Indication: ANKYLOSING SPONDYLITIS
     Route: 042
     Dates: start: 20050928
  2. METHOTREXATE [Concomitant]
     Route: 065
  3. SULINDAC [Concomitant]
     Route: 065
  4. ACCUPRIL [Concomitant]
     Route: 065
  5. EFFEXOR [Concomitant]
     Route: 065
  6. EZETROL [Concomitant]
     Route: 065
  7. METFORMIN [Concomitant]
     Route: 065
  8. FENTANYL [Concomitant]
     Route: 065
  9. FOLIC ACID [Concomitant]
     Route: 065
  10. TESTOSTERONE [Concomitant]
     Route: 065

REACTIONS (1)
  - Basal cell carcinoma [Unknown]
